FAERS Safety Report 5330028-9 (Version None)
Quarter: 2007Q2

REPORT INFORMATION
  Report Type: 
  Country: None (occurrence: None)
  Receive Date: 20070515
  Receipt Date: 20070430
  Transmission Date: 20071010
  Serious: Yes (Other)
  Sender: FDA-Public Use
  Company Number: 8023739

PATIENT
  Sex: Male

DRUGS (2)
  1. KEPPRA [Suspect]
     Dosage: 400 MG 1/D
     Dates: end: 20070101
  2. VALPROATE SODIUM [Suspect]

REACTIONS (2)
  - COAGULOPATHY [None]
  - THROMBOCYTOPENIA [None]
